FAERS Safety Report 11659335 (Version 1)
Quarter: 2015Q4

REPORT INFORMATION
  Report Type: Spontaneous
  Country: US (occurrence: None)
  Receive Date: 20151023
  Receipt Date: 20151023
  Transmission Date: 20160304
  Serious: Yes (Other)
  Sender: FDA-Public Use
  Company Number: None

PATIENT
  Age: 49 Year
  Sex: Male
  Weight: 136.08 kg

DRUGS (1)
  1. HYDROCODONE [Suspect]
     Active Substance: HYDROCODONE
     Indication: BACK PAIN
     Dosage: 1 PILL EVERY 6 HOURS FOUR TIMES DAILY TAKEN BY MOUTH
     Route: 048
     Dates: start: 20150901, end: 20151021

REACTIONS (2)
  - Withdrawal syndrome [None]
  - Breakthrough pain [None]

NARRATIVE: CASE EVENT DATE: 20150915
